FAERS Safety Report 7248296-5 (Version None)
Quarter: 2011Q1

REPORT INFORMATION
  Report Type: 
  Country: None (occurrence: None)
  Receive Date: 20110127
  Receipt Date: 20101215
  Transmission Date: 20110831
  Serious: Yes (Death, Other)
  Sender: FDA-Public Use
  Company Number: US-BAXTER-2010BH006487

PATIENT
  Age: 72 Year
  Sex: Male
  Weight: 97 kg

DRUGS (86)
  1. HEPARIN SODIUM INJECTION [Suspect]
     Route: 040
     Dates: start: 20080119, end: 20080119
  2. HEPARIN SODIUM INJECTION [Suspect]
     Route: 041
     Dates: start: 20080119, end: 20080122
  3. HEPARIN SODIUM INJECTION [Suspect]
     Route: 042
     Dates: start: 20080117, end: 20080117
  4. HEPARIN SODIUM INJECTION [Suspect]
     Route: 042
     Dates: start: 20080117, end: 20080117
  5. HEPARIN SODIUM INJECTION [Suspect]
     Route: 040
     Dates: start: 20080120, end: 20080120
  6. HEPARIN SODIUM INJECTION [Suspect]
     Route: 042
     Dates: start: 20080118, end: 20080118
  7. FLOMAX ^CSL^ [Concomitant]
     Indication: PRODUCT USED FOR UNKNOWN INDICATION
     Route: 065
  8. ASA [Concomitant]
     Indication: PRODUCT USED FOR UNKNOWN INDICATION
     Route: 065
  9. ENOXAPARIN SODIUM [Concomitant]
     Indication: PRODUCT USED FOR UNKNOWN INDICATION
     Route: 065
  10. SENNA [Concomitant]
     Indication: PRODUCT USED FOR UNKNOWN INDICATION
     Route: 065
  11. LOPRESSOR [Concomitant]
     Indication: PRODUCT USED FOR UNKNOWN INDICATION
     Route: 065
  12. ZOFRAN [Concomitant]
     Indication: PRODUCT USED FOR UNKNOWN INDICATION
     Route: 065
  13. XOPENEX [Concomitant]
     Indication: PRODUCT USED FOR UNKNOWN INDICATION
     Route: 065
  14. HEPARIN SODIUM INJECTION [Suspect]
     Indication: ANGIOPLASTY
     Route: 040
     Dates: start: 20080113, end: 20080113
  15. HEPARIN SODIUM INJECTION [Suspect]
     Route: 058
     Dates: start: 20080116, end: 20080116
  16. HEPARIN SODIUM INJECTION [Suspect]
     Route: 040
     Dates: start: 20080119, end: 20080119
  17. HEPARIN SODIUM INJECTION [Suspect]
     Route: 040
     Dates: start: 20080119, end: 20080119
  18. HEPARIN SODIUM INJECTION [Suspect]
     Route: 040
     Dates: start: 20080120, end: 20080120
  19. HEPARIN SODIUM INJECTION [Suspect]
     Route: 042
     Dates: start: 20080118, end: 20080118
  20. HEPARIN SODIUM INJECTION [Suspect]
     Route: 042
     Dates: start: 20080118, end: 20080118
  21. TERAZOSIN HCL [Concomitant]
     Indication: PRODUCT USED FOR UNKNOWN INDICATION
     Route: 065
  22. HYDRALAZINE HCL [Concomitant]
     Indication: PRODUCT USED FOR UNKNOWN INDICATION
     Route: 065
  23. MIRALAX [Concomitant]
     Indication: PRODUCT USED FOR UNKNOWN INDICATION
     Route: 065
  24. LIPITOR [Concomitant]
     Indication: PRODUCT USED FOR UNKNOWN INDICATION
     Route: 065
  25. AMLODIPINE BESYLATE [Concomitant]
     Indication: PRODUCT USED FOR UNKNOWN INDICATION
     Route: 065
  26. MAALOX                                  /USA/ [Concomitant]
     Indication: PRODUCT USED FOR UNKNOWN INDICATION
     Route: 065
  27. HEPARIN SODIUM INJECTION [Suspect]
     Route: 058
     Dates: start: 20080116, end: 20080116
  28. HEPARIN SODIUM INJECTION [Suspect]
     Route: 040
     Dates: start: 20080117, end: 20080117
  29. AMLODIPINE [Concomitant]
     Indication: PRODUCT USED FOR UNKNOWN INDICATION
     Route: 065
  30. NOVOLIN 70/30 [Concomitant]
     Indication: PRODUCT USED FOR UNKNOWN INDICATION
     Route: 065
  31. PRINIVIL [Concomitant]
     Indication: PRODUCT USED FOR UNKNOWN INDICATION
     Route: 065
  32. ALTACE [Concomitant]
     Indication: PRODUCT USED FOR UNKNOWN INDICATION
     Route: 065
  33. HIBICLENS [Concomitant]
     Indication: PRODUCT USED FOR UNKNOWN INDICATION
     Route: 065
  34. WARFARIN SODIUM [Concomitant]
     Indication: PRODUCT USED FOR UNKNOWN INDICATION
     Route: 065
  35. HEPARIN SODIUM INJECTION [Suspect]
     Route: 040
     Dates: start: 20080117, end: 20080117
  36. HEPARIN SODIUM INJECTION [Suspect]
     Route: 040
     Dates: start: 20080117, end: 20080117
  37. HEPARIN SODIUM INJECTION [Suspect]
     Route: 041
     Dates: start: 20080119, end: 20080122
  38. HEPARIN SODIUM INJECTION [Suspect]
     Route: 040
     Dates: start: 20080120, end: 20080120
  39. HEPARIN SODIUM 1,000 UNITS AND SODIUM CHLORIDE 0.9% [Suspect]
     Route: 042
     Dates: start: 20080104, end: 20080104
  40. PLAVIX [Concomitant]
     Indication: PRODUCT USED FOR UNKNOWN INDICATION
     Route: 065
  41. METOPROLOL SUCCINATE [Concomitant]
     Indication: PRODUCT USED FOR UNKNOWN INDICATION
     Route: 065
  42. CHLORHEXIDINE HYDROCHLORIDE [Concomitant]
     Indication: PRODUCT USED FOR UNKNOWN INDICATION
     Route: 065
  43. LASIX [Concomitant]
     Indication: PRODUCT USED FOR UNKNOWN INDICATION
     Route: 065
  44. TYLENOL-500 [Concomitant]
     Indication: PRODUCT USED FOR UNKNOWN INDICATION
     Route: 065
  45. ROSUVASTATIN CALCIUM [Concomitant]
     Indication: PRODUCT USED FOR UNKNOWN INDICATION
     Route: 065
  46. PROCRIT [Concomitant]
     Indication: PRODUCT USED FOR UNKNOWN INDICATION
     Route: 065
  47. ESOMEPRAZOLE [Concomitant]
     Indication: PRODUCT USED FOR UNKNOWN INDICATION
     Route: 065
  48. HEPARIN SODIUM INJECTION [Suspect]
     Route: 058
     Dates: start: 20080116, end: 20080116
  49. HEPARIN SODIUM INJECTION [Suspect]
     Route: 041
     Dates: start: 20080119, end: 20080122
  50. HEPARIN SODIUM INJECTION [Suspect]
     Route: 042
     Dates: start: 20080117, end: 20080117
  51. HEPARIN SODIUM 1,000 UNITS AND SODIUM CHLORIDE 0.9% [Suspect]
     Indication: ANGIOPLASTY
     Route: 042
     Dates: start: 20080117, end: 20080117
  52. HEPARIN SODIUM 1,000 UNITS AND SODIUM CHLORIDE 0.9% [Suspect]
     Indication: STENT PLACEMENT
     Route: 042
     Dates: start: 20080117, end: 20080117
  53. CARTIA XT [Concomitant]
     Indication: PRODUCT USED FOR UNKNOWN INDICATION
     Route: 065
  54. ACETAMINOPHEN [Concomitant]
     Indication: PRODUCT USED FOR UNKNOWN INDICATION
     Route: 065
  55. LORAZEPAM [Concomitant]
     Indication: PRODUCT USED FOR UNKNOWN INDICATION
     Route: 065
  56. ONDANSETRON HYDROCHLORIDE [Concomitant]
     Indication: PRODUCT USED FOR UNKNOWN INDICATION
     Route: 065
  57. AMIODARONE HCL [Concomitant]
     Indication: PRODUCT USED FOR UNKNOWN INDICATION
     Route: 065
  58. HEPARIN SODIUM INJECTION [Suspect]
     Indication: INTRAVENOUS CATHETER MANAGEMENT
     Route: 040
     Dates: start: 20080113, end: 20080113
  59. HEPARIN SODIUM INJECTION [Suspect]
     Route: 042
     Dates: start: 20080118, end: 20080118
  60. FINASTERIDE [Concomitant]
     Indication: PRODUCT USED FOR UNKNOWN INDICATION
     Route: 065
  61. ISOSORBIDE MONONITRATE [Concomitant]
     Indication: PRODUCT USED FOR UNKNOWN INDICATION
     Route: 065
  62. NITROGLYCERIN [Concomitant]
     Indication: PRODUCT USED FOR UNKNOWN INDICATION
     Route: 062
  63. LOVENOX [Concomitant]
     Indication: PRODUCT USED FOR UNKNOWN INDICATION
     Route: 065
  64. SODIUM CHLORIDE [Concomitant]
     Indication: PRODUCT USED FOR UNKNOWN INDICATION
     Route: 042
  65. DARVOCET-N 100 [Concomitant]
     Indication: PRODUCT USED FOR UNKNOWN INDICATION
     Route: 065
  66. HEPARIN SODIUM INJECTION [Suspect]
     Indication: ATRIAL FIBRILLATION
     Route: 040
     Dates: start: 20080113, end: 20080113
  67. HEPARIN SODIUM INJECTION [Suspect]
     Route: 042
     Dates: start: 20080117, end: 20080117
  68. HEPARIN SODIUM 5,000 UNITS IN DEXTROSE 5% [Suspect]
     Indication: PULMONARY OEDEMA
     Route: 041
     Dates: start: 20080113, end: 20080115
  69. HEPARIN [Suspect]
     Indication: ATRIAL FIBRILLATION
     Route: 041
     Dates: start: 20080119, end: 20080122
  70. LEVAQUIN [Concomitant]
     Indication: PRODUCT USED FOR UNKNOWN INDICATION
     Route: 065
  71. ESCITALOPRAM [Concomitant]
     Indication: PRODUCT USED FOR UNKNOWN INDICATION
     Route: 065
  72. PANTOPRAZOLE SODIUM [Concomitant]
     Indication: PRODUCT USED FOR UNKNOWN INDICATION
     Route: 065
  73. BACTROBAN NASAL [Concomitant]
     Indication: PRODUCT USED FOR UNKNOWN INDICATION
     Route: 065
  74. VASOTEC [Concomitant]
     Indication: PRODUCT USED FOR UNKNOWN INDICATION
     Route: 065
  75. DIALYVITE [Concomitant]
     Indication: PRODUCT USED FOR UNKNOWN INDICATION
     Route: 065
  76. HEPARIN SODIUM INJECTION [Suspect]
     Indication: STENT PLACEMENT
     Route: 040
     Dates: start: 20080113, end: 20080113
  77. HEPARIN SODIUM INJECTION [Suspect]
     Route: 058
     Dates: start: 20080116, end: 20080116
  78. HEPARIN SODIUM INJECTION [Suspect]
     Route: 040
     Dates: start: 20080117, end: 20080117
  79. HEPARIN SODIUM INJECTION [Suspect]
     Route: 040
     Dates: start: 20080119, end: 20080119
  80. HEPARIN SODIUM INJECTION [Suspect]
     Route: 041
     Dates: start: 20080119, end: 20080122
  81. HEPARIN SODIUM INJECTION [Suspect]
     Route: 040
     Dates: start: 20080120, end: 20080120
  82. HEPARIN SODIUM 1,000 UNITS AND SODIUM CHLORIDE 0.9% [Suspect]
     Route: 042
     Dates: start: 20080104, end: 20080104
  83. BISACODYL [Concomitant]
     Indication: PRODUCT USED FOR UNKNOWN INDICATION
     Route: 065
  84. MUCOSIL-20 [Concomitant]
     Indication: PRODUCT USED FOR UNKNOWN INDICATION
     Route: 065
  85. ASA [Concomitant]
     Route: 065
  86. DIFLUCAN [Concomitant]
     Indication: PRODUCT USED FOR UNKNOWN INDICATION
     Route: 065

REACTIONS (31)
  - CATHETER SITE HAEMORRHAGE [None]
  - FATIGUE [None]
  - HEPARIN-INDUCED THROMBOCYTOPENIA [None]
  - URINARY TRACT INFECTION [None]
  - FLUID OVERLOAD [None]
  - HAEMATEMESIS [None]
  - EPISTAXIS [None]
  - DECUBITUS ULCER [None]
  - ASTHENIA [None]
  - RENAL FAILURE CHRONIC [None]
  - SEPSIS [None]
  - ATRIAL FIBRILLATION [None]
  - DYSPNOEA [None]
  - PAIN [None]
  - SPEECH DISORDER [None]
  - PNEUMONIA ASPIRATION [None]
  - CLOSTRIDIAL INFECTION [None]
  - DEVICE RELATED INFECTION [None]
  - HYPOKALAEMIA [None]
  - SUBARACHNOID HAEMORRHAGE [None]
  - BEDRIDDEN [None]
  - ANAEMIA [None]
  - CONTUSION [None]
  - DYSPHAGIA [None]
  - PULMONARY OEDEMA [None]
  - VOMITING [None]
  - DIARRHOEA [None]
  - DRY MOUTH [None]
  - NAUSEA [None]
  - RESTLESS LEGS SYNDROME [None]
  - RASH GENERALISED [None]
